FAERS Safety Report 11500516 (Version 1)
Quarter: 2015Q3

REPORT INFORMATION
  Report Type: Spontaneous
  Country: GR (occurrence: GR)
  Receive Date: 20150914
  Receipt Date: 20150914
  Transmission Date: 20151125
  Serious: Yes (Other)
  Sender: FDA-Public Use
  Company Number: GR-SA-2015SA137253

PATIENT
  Age: 70 Year
  Sex: Female

DRUGS (3)
  1. CO-APROVEL [Suspect]
     Active Substance: HYDROCHLOROTHIAZIDE\IRBESARTAN
     Route: 065
  2. PIRETANIDE [Concomitant]
     Active Substance: PIRETANIDE
  3. HYDROCHLOROTHIAZIDE/IRBESARTAN [Suspect]
     Active Substance: HYDROCHLOROTHIAZIDE\IRBESARTAN
     Route: 065

REACTIONS (7)
  - Hypokinesia [Unknown]
  - Blood glucose increased [Unknown]
  - Thyroid disorder [Unknown]
  - Knee arthroplasty [Unknown]
  - Peripheral swelling [Unknown]
  - Muscle spasms [Unknown]
  - Cardiac valve disease [Unknown]
